FAERS Safety Report 9211080 (Version 1)
Quarter: 2013Q2

REPORT INFORMATION
  Report Type: Report from Study
  Country: US (occurrence: US)
  Receive Date: 20130404
  Receipt Date: 20130404
  Transmission Date: 20140414
  Serious: Yes (Hospitalization)
  Sender: FDA-Public Use
  Company Number: US-AMGEN-KDC418908

PATIENT
  Age: 85 Year
  Sex: Male

DRUGS (14)
  1. DENOSUMAB [Suspect]
     Indication: PROSTATE CANCER
     Dosage: UNK UNK, Q4WK
     Route: 058
     Dates: start: 20070220
  2. GOSERELIN [Concomitant]
     Dosage: 10.8 MG, Q3MO
     Route: 058
  3. CALCIUM WITH VITAMIN D [Concomitant]
     Dosage: UNK UNK, QD
  4. ASPIRIN [Concomitant]
     Dosage: 81 MG, QD
     Route: 048
  5. ASPIRIN [Concomitant]
     Dosage: 162 MG, QD
     Route: 048
     Dates: start: 20100616, end: 20100618
  6. OMEPRAZOLE [Concomitant]
     Dosage: 20 MG, BID
     Route: 048
  7. PANTOPRAZOLE SODIUM [Concomitant]
     Dosage: UNK UNK, UNK
     Route: 048
  8. LANSOPRAZOLE [Concomitant]
  9. METOCLOPRAMIDE [Concomitant]
  10. HYDROCODONE BITARTRATE + ACETAMINOPHEN [Concomitant]
     Dosage: UNK UNK, PRN
     Route: 048
  11. HYDROCODONE BITARTRATE + ACETAMINOPHEN [Concomitant]
     Dosage: 325 MG, PRN
     Route: 048
     Dates: start: 20100618, end: 20100620
  12. TERAZOSIN HYDROCHLORIDE [Concomitant]
  13. TAMSULOSIN HCL [Concomitant]
     Dosage: UNK UNK, QD
     Route: 048
  14. SIMVASTATIN [Concomitant]
     Dosage: 40 MG, QD
     Route: 048

REACTIONS (4)
  - Syncope [Recovered/Resolved]
  - Pulmonary embolism [Recovered/Resolved]
  - Urethral obstruction [Not Recovered/Not Resolved]
  - Urethral stenosis [Not Recovered/Not Resolved]
